FAERS Safety Report 24551902 (Version 1)
Quarter: 2024Q4

REPORT INFORMATION
  Report Type: Spontaneous
  Country: US (occurrence: US)
  Receive Date: 20241026
  Receipt Date: 20241026
  Transmission Date: 20250114
  Serious: No
  Sender: GLAXOSMITHKLINE
  Company Number: US-GSK-US2024128060

PATIENT
  Age: 79 Year
  Sex: Female

DRUGS (1)
  1. TRELEGY ELLIPTA [Suspect]
     Active Substance: FLUTICASONE FUROATE\UMECLIDINIUM BROMIDE\VILANTEROL TRIFENATATE
     Indication: Chronic obstructive pulmonary disease
     Dosage: 100/62.5/25MCG INH 30
     Dates: start: 20190101

REACTIONS (2)
  - COVID-19 [Unknown]
  - Ageusia [Unknown]

NARRATIVE: CASE EVENT DATE: 20240801
